FAERS Safety Report 4955210-1 (Version None)
Quarter: 2006Q1

REPORT INFORMATION
  Report Type: 
  Country: None (occurrence: None)
  Receive Date: 20060322
  Receipt Date: 20060309
  Transmission Date: 20060701
  Serious: Yes (Other)
  Sender: FDA-Public Use
  Company Number: 2006034493

PATIENT
  Age: 65 Year
  Sex: Male
  Weight: 81.6475 kg

DRUGS (6)
  1. VIAGRA [Suspect]
     Indication: ERECTILE DYSFUNCTION
     Dosage: 50 MG (50 MG, AS NECESSARY),
     Dates: end: 20050101
  2. LEVITRA [Suspect]
     Indication: ERECTILE DYSFUNCTION
     Dosage: 20 MG
     Dates: start: 20050101
  3. TOPROL-XL [Concomitant]
  4. ZOCOR [Concomitant]
  5. CHOLESTEROL- AND TRIGLYCERIDE REDUCERS (CHOLESTEROL- AND TRIGLYCERIDE [Concomitant]
  6. ANTICOAGULANTS (ANTITHROMBOTIC AGENTS) [Concomitant]

REACTIONS (3)
  - CORONARY ARTERY OCCLUSION [None]
  - DRUG EFFECT DECREASED [None]
  - DRUG INEFFECTIVE [None]
